FAERS Safety Report 14474544 (Version 1)
Quarter: 2018Q1

REPORT INFORMATION
  Report Type: Spontaneous
  Country: US (occurrence: US)
  Receive Date: 20180201
  Receipt Date: 20180201
  Transmission Date: 20180509
  Serious: Yes (Other)
  Sender: FDA-Public Use
  Company Number: US-BEH-2018087255

PATIENT
  Sex: Female
  Weight: 77.98 kg

DRUGS (24)
  1. LIDOCAINE/PRILOCAINE [Concomitant]
     Active Substance: LIDOCAINE\PRILOCAINE
  2. LOSARTAN. [Concomitant]
     Active Substance: LOSARTAN
  3. BACLOFEN. [Concomitant]
     Active Substance: BACLOFEN
  4. EPINEPHRINE. [Concomitant]
     Active Substance: EPINEPHRINE
  5. PRILOSEC [Concomitant]
     Active Substance: OMEPRAZOLE MAGNESIUM
  6. CLARITIN [Concomitant]
     Active Substance: LORATADINE
  7. SUMATRIPTAN SUCCINATE. [Concomitant]
     Active Substance: SUMATRIPTAN SUCCINATE
  8. ALVESCO [Concomitant]
     Active Substance: CICLESONIDE
  9. MULTIVITAMINS [Concomitant]
     Active Substance: VITAMINS
  10. HIZENTRA [Suspect]
     Active Substance: HUMAN IMMUNOGLOBULIN G
     Dosage: UNK
     Route: 058
  11. LYRICA [Concomitant]
     Active Substance: PREGABALIN
  12. PROVENTIL [Concomitant]
     Active Substance: ALBUTEROL
  13. PYRIDOSTIGMINE [Concomitant]
     Active Substance: PYRIDOSTIGMINE
  14. HIZENTRA [Suspect]
     Active Substance: HUMAN IMMUNOGLOBULIN G
     Dosage: UNK
     Route: 058
  15. LMX                                /00033401/ [Concomitant]
  16. METHOTREXATE. [Concomitant]
     Active Substance: METHOTREXATE
  17. HIZENTRA [Suspect]
     Active Substance: HUMAN IMMUNOGLOBULIN G
     Indication: IMMUNODEFICIENCY COMMON VARIABLE
     Dosage: 13 G, UNK
     Route: 058
     Dates: start: 20150827
  18. LEVOTHYROXINE. [Concomitant]
     Active Substance: LEVOTHYROXINE
  19. DIPHENHYDRAMINE. [Concomitant]
     Active Substance: DIPHENHYDRAMINE
  20. AMLODIPINE [Concomitant]
     Active Substance: AMLODIPINE BESYLATE
  21. SERTRALINE [Concomitant]
     Active Substance: SERTRALINE HYDROCHLORIDE
  22. PREDNISONE. [Concomitant]
     Active Substance: PREDNISONE
  23. LORAZEPAM. [Concomitant]
     Active Substance: LORAZEPAM
  24. CALCIUM+VIT D                      /00944201/ [Concomitant]
     Active Substance: CALCIUM CARBONATE\CHOLECALCIFEROL

REACTIONS (2)
  - Pancreatitis [Unknown]
  - Postural orthostatic tachycardia syndrome [Unknown]
